FAERS Safety Report 21856899 (Version 1)
Quarter: 2023Q1

REPORT INFORMATION
  Report Type: Spontaneous
  Country: IT (occurrence: IT)
  Receive Date: 20230113
  Receipt Date: 20230113
  Transmission Date: 20230418
  Serious: Yes (Other)
  Sender: FDA-Public Use
  Company Number: IT-SUN PHARMACEUTICAL INDUSTRIES LTD-2022R1-367178

PATIENT
  Age: 70 Year
  Sex: Male

DRUGS (1)
  1. PREDNISONE [Suspect]
     Active Substance: PREDNISONE
     Indication: Myasthenia gravis
     Dosage: 12.5 MILLIGRAM, DAILY
     Route: 065

REACTIONS (3)
  - Drug withdrawal syndrome [Unknown]
  - Condition aggravated [Unknown]
  - Underdose [Unknown]
